FAERS Safety Report 10133317 (Version 3)
Quarter: 2014Q2

REPORT INFORMATION
  Report Type: Report from Study
  Country: US (occurrence: US)
  Receive Date: 20140428
  Receipt Date: 20140618
  Transmission Date: 20141212
  Serious: Yes (Hospitalization)
  Sender: FDA-Public Use
  Company Number: US-ABBVIE-14P-163-1226459-00

PATIENT
  Age: 16 Year
  Sex: Male
  Weight: 63.5 kg

DRUGS (6)
  1. HUMIRA [Suspect]
     Indication: CROHN^S DISEASE
     Route: 058
     Dates: start: 201111, end: 20120827
  2. HUMIRA [Suspect]
     Route: 058
     Dates: start: 201309
  3. IMURAN [Suspect]
     Indication: CROHN^S DISEASE
     Dates: end: 2012
  4. IMURAN [Suspect]
     Dates: start: 2012
  5. ITRACONAZOLE [Concomitant]
     Indication: PRODUCT USED FOR UNKNOWN INDICATION
     Route: 048
     Dates: start: 201307, end: 201308
  6. AMBISOME [Concomitant]
     Indication: PRODUCT USED FOR UNKNOWN INDICATION
     Route: 042
     Dates: end: 20130911

REACTIONS (4)
  - Histoplasmosis disseminated [Recovered/Resolved]
  - Cough [Recovered/Resolved]
  - Off label use [Not Recovered/Not Resolved]
  - Clostridium difficile infection [Recovered/Resolved]
